FAERS Safety Report 6418130-1 (Version None)
Quarter: 2009Q4

REPORT INFORMATION
  Report Type: 
  Country: None (occurrence: None)
  Receive Date: 20091028
  Receipt Date: 20091020
  Transmission Date: 20100525
  Serious: Yes (Hospitalization)
  Sender: FDA-Public Use
  Company Number: IT-PFIZER INC-2009282075

PATIENT
  Age: 60 Year

DRUGS (5)
  1. METHYLPREDNISOLONE AND METHYLPREDNISOLONE ACETATE AND METHYLPREDNISOLO [Suspect]
     Indication: B-CELL LYMPHOMA
     Dosage: 80 MG TOTAL
     Route: 042
     Dates: start: 20090915, end: 20090915
  2. HYDROCORTISONE AND HYDROCORTISONE ACETATE AND HYDROCORTISONE CIPIONATE [Suspect]
     Indication: HYPERSENSITIVITY
     Dosage: 200 MG TOTAL
     Route: 040
     Dates: start: 20090914, end: 20090914
  3. VINCRISTINE [Concomitant]
     Dosage: 2 MG
     Route: 042
     Dates: start: 20090915, end: 20090915
  4. CYCLOPHOSPHAMIDE [Concomitant]
     Dosage: 1250 MG
     Route: 042
     Dates: start: 20090915, end: 20090915
  5. IRBESARTAN [Concomitant]
     Dosage: 300 MG
     Route: 048

REACTIONS (2)
  - HYPERTENSIVE CRISIS [None]
  - TACHYCARDIA [None]
